FAERS Safety Report 7956118-X (Version None)
Quarter: 2011Q4

REPORT INFORMATION
  Report Type: 
  Country: None (occurrence: None)
  Receive Date: 20111205
  Receipt Date: 20111122
  Transmission Date: 20120403
  Serious: Yes (Hospitalization)
  Sender: FDA-Public Use
  Company Number: ZA-ELI_LILLY_AND_COMPANY-ZA201109003264

PATIENT
  Sex: Male
  Weight: 15 kg

DRUGS (10)
  1. STRATTERA [Suspect]
     Dosage: 10 MG, QD
     Dates: start: 20110805, end: 20110816
  2. STRATTERA [Suspect]
     Dosage: 18 MG, QD
     Route: 048
     Dates: start: 20110717, end: 20110731
  3. MINERALS NOS [Concomitant]
  4. ZINC [Concomitant]
     Dosage: 7.8 MG, UNK
  5. STRATTERA [Suspect]
     Indication: ATTENTION DEFICIT/HYPERACTIVITY DISORDER
     Dosage: 1 DF, UNKNOWN
  6. L-CARNITINE [Concomitant]
     Dosage: 340 MG, UNK
  7. UNSPECIFIED HERBAL [Concomitant]
  8. VITAMINS WITH MINERALS [Concomitant]
  9. VITAMIN B-COMPLEX, OTHER COMBINATIONS [Concomitant]
  10. BIOTIN [Concomitant]
     Dosage: 8 MG, UNK

REACTIONS (6)
  - IMPAIRED GASTRIC EMPTYING [None]
  - OFF LABEL USE [None]
  - VOMITING [None]
  - DECREASED APPETITE [None]
  - OBSTRUCTION GASTRIC [None]
  - DEHYDRATION [None]
